FAERS Safety Report 8711418 (Version 2)
Quarter: 2012Q4

REPORT INFORMATION
  Report Type: 
  Country: IT (occurrence: IT)
  Receive Date: 20120807
  Receipt Date: 20120904
  Transmission Date: 20130627
  Serious: Yes (Hospitalization)
  Sender: FDA-Public Use
  Company Number: IT-JNJFOC-20120800682

PATIENT
  Age: 60 Year
  Sex: Female

DRUGS (1)
  1. RISPERDAL [Suspect]
     Indication: SELF INJURIOUS BEHAVIOUR
     Route: 048
     Dates: start: 20120701, end: 20120701

REACTIONS (5)
  - Self injurious behaviour [Unknown]
  - Hypotension [Recovered/Resolved]
  - Tachycardia [Recovered/Resolved]
  - Sopor [Recovered/Resolved]
  - Overdose [Recovered/Resolved]
